FAERS Safety Report 4434344-4 (Version None)
Quarter: 2004Q3

REPORT INFORMATION
  Report Type: 
  Country: None (occurrence: None)
  Receive Date: 20040826
  Receipt Date: 20040823
  Transmission Date: 20050211
  Serious: Yes (Other)
  Sender: FDA-Public Use
  Company Number: DE-MERCK-0408DEU00174

PATIENT
  Age: 62 Year
  Sex: Male

DRUGS (1)
  1. VIOXX [Suspect]
     Indication: PAIN
     Route: 048
     Dates: start: 20040801, end: 20040801

REACTIONS (3)
  - DYSPHAGIA [None]
  - SWELLING FACE [None]
  - SWOLLEN TONGUE [None]
